FAERS Safety Report 16839954 (Version 1)
Quarter: 2019Q3

REPORT INFORMATION
  Report Type: Spontaneous
  Country: US (occurrence: US)
  Receive Date: 20190801
  Receipt Date: 20190801
  Transmission Date: 20191005
  Serious: No
  Sender: FDA-Public Use
  Company Number: None

PATIENT
  Age: 39 Year
  Sex: Female

DRUGS (1)
  1. LUPRON DEPOT [Suspect]
     Active Substance: LEUPROLIDE ACETATE
     Dosage: ?          OTHER FREQUENCY:UNKNOWN;?
     Route: 030
     Dates: start: 201711

REACTIONS (2)
  - Product dispensing error [None]
  - Product prescribing error [None]

NARRATIVE: CASE EVENT DATE: 20181117
